FAERS Safety Report 5430224-6 (Version None)
Quarter: 2007Q3

REPORT INFORMATION
  Report Type: 
  Country: None (occurrence: None)
  Receive Date: 20070731
  Receipt Date: 20070608
  Transmission Date: 20080115
  Serious: No
  Sender: FDA-Public Use
  Company Number: US200705003504

PATIENT
  Age: 53 Year
  Sex: Female

DRUGS (11)
  1. BYETTA [Suspect]
     Indication: DIABETES MELLITUS
     Dosage: 5 UG, 2/D, SUBCUTANEOUS
     Route: 058
     Dates: start: 20070301, end: 20070606
  2. HUMALOG [Concomitant]
  3. LANTUS [Concomitant]
  4. COZAAR [Concomitant]
  5. METOPROLOL TARTRATE [Concomitant]
  6. LIPITOR [Concomitant]
  7. ZOLOFT [Concomitant]
  8. XANAX [Concomitant]
  9. ASPIRIN [Concomitant]
  10. NEXIUM [Concomitant]
  11. HYDROXYZINE [Concomitant]

REACTIONS (7)
  - BLOOD GLUCOSE INCREASED [None]
  - EYE PRURITUS [None]
  - FALL [None]
  - PRURITUS [None]
  - RASH [None]
  - SKIN LACERATION [None]
  - UPPER LIMB FRACTURE [None]
